FAERS Safety Report 6934868-1 (Version None)
Quarter: 2010Q3

REPORT INFORMATION
  Report Type: 
  Country: None (occurrence: None)
  Receive Date: 20100820
  Receipt Date: 20100806
  Transmission Date: 20110219
  Serious: Yes (Other)
  Sender: FDA-Public Use
  Company Number: PHEH2010US03496

PATIENT
  Sex: Female

DRUGS (6)
  1. AREDIA [Suspect]
     Indication: METASTASES TO BONE
     Dosage: UNK
     Dates: start: 19970220, end: 20030101
  2. CYTOXAN [Concomitant]
  3. METHOTREXATE [Concomitant]
  4. FLUOROURACIL [Concomitant]
  5. TAXOL [Concomitant]
  6. ZOLADEX [Concomitant]

REACTIONS (20)
  - BACK PAIN [None]
  - CENTRAL VENOUS CATHETERISATION [None]
  - CONSTIPATION [None]
  - DECREASED ACTIVITY [None]
  - DENTAL CARE [None]
  - DEPRESSION [None]
  - DIVERTICULUM [None]
  - DIZZINESS [None]
  - DYSPEPSIA [None]
  - FATIGUE [None]
  - FUNGAL SKIN INFECTION [None]
  - GASTROENTERITIS [None]
  - HOT FLUSH [None]
  - HYPOAESTHESIA [None]
  - LYMPHOEDEMA [None]
  - PAIN IN JAW [None]
  - PHLEBITIS [None]
  - POLYP [None]
  - POOR QUALITY SLEEP [None]
  - SINUSITIS [None]
